FAERS Safety Report 7746293-4 (Version None)
Quarter: 2011Q3

REPORT INFORMATION
  Report Type: 
  Country: None (occurrence: None)
  Receive Date: 20110913
  Receipt Date: 20110909
  Transmission Date: 20111222
  Serious: Yes (Hospitalization)
  Sender: FDA-Public Use
  Company Number: DE-ROCHE-797576

PATIENT
  Sex: Male
  Weight: 127 kg

DRUGS (13)
  1. METFORMIN HCL [Concomitant]
     Route: 048
  2. BISOPROLOL FUMARATE [Concomitant]
     Indication: HYPERTENSION
     Route: 048
  3. CYNT [Concomitant]
     Indication: HYPERTENSION
     Dosage: DOSE: 0.4
     Route: 048
  4. PANTOPRAZOLE [Concomitant]
     Indication: PROPHYLAXIS
     Route: 048
  5. SIMVASTATIN [Concomitant]
     Route: 048
  6. ESIDRIX [Concomitant]
     Indication: HYPERTENSION
     Route: 048
  7. AMLODIPINE [Concomitant]
     Indication: HYPERTENSION
     Route: 048
  8. OXALIPLATIN [Suspect]
     Indication: RECTAL CANCER
     Dosage: LAST DOSE PRIOR TO SAE: 06 JUNE 2011.
     Route: 042
     Dates: start: 20110505
  9. LASIX [Concomitant]
     Indication: HYPERTENSION
     Dosage: 1/2 PER DAY
     Route: 048
  10. ASPIRIN [Concomitant]
     Route: 048
  11. CAPECITABINE [Suspect]
     Indication: RECTAL CANCER
     Dosage: LAST DOSE PRIOR TO SAE: 01 JULY 2011.
     Route: 048
     Dates: start: 20110509
  12. GLYBURIDE [Concomitant]
     Route: 048
  13. RAMIPRIL [Concomitant]
     Indication: HYPERTENSION
     Dosage: DRUG NAME REPORTED AS RAMIPRIL 50 MG
     Route: 048

REACTIONS (2)
  - WOUND INFECTION [None]
  - IMPAIRED HEALING [None]
